FAERS Safety Report 6240030-0 (Version None)
Quarter: 2009Q2

REPORT INFORMATION
  Report Type: 
  Country: None (occurrence: None)
  Receive Date: 20090623
  Receipt Date: 20090618
  Transmission Date: 20091009
  Serious: No
  Sender: FDA-Public Use
  Company Number: US-B.I. PHARMACEUTICALS,INC./RIDGEFIELD-2009-BP-06761BP

PATIENT
  Age: 82 Year
  Sex: Female

DRUGS (5)
  1. CATAPRES-TTS-1 [Suspect]
     Indication: HYPERTENSION
     Dosage: 0.1 MG
     Route: 061
     Dates: start: 20090422, end: 20090423
  2. DIOVAN [Concomitant]
     Indication: HYPERTENSION
     Dosage: 320 MG
  3. TRAMADOL HCL [Concomitant]
     Indication: IRRITABLE BOWEL SYNDROME
  4. CLONAZEPAM [Concomitant]
  5. CLONIDINE [Concomitant]
     Indication: HYPERTENSION
     Dosage: 0.9 MG
     Route: 048
     Dates: end: 20090422

REACTIONS (1)
  - DRUG INEFFECTIVE [None]
